FAERS Safety Report 6290677-0 (Version None)
Quarter: 2009Q3

REPORT INFORMATION
  Report Type: 
  Country: None (occurrence: None)
  Receive Date: 20090730
  Receipt Date: 20090721
  Transmission Date: 20100115
  Serious: Yes (Hospitalization)
  Sender: FDA-Public Use
  Company Number: PHHY2009DE23419

PATIENT
  Sex: Female
  Weight: 91 kg

DRUGS (3)
  1. ACLASTA [Suspect]
     Indication: OSTEOPOROSIS
     Dosage: UNK
     Route: 042
     Dates: start: 20090325, end: 20090325
  2. CALCIUM [Concomitant]
     Indication: OSTEOPOROSIS
     Dosage: 1000 MG, UNK
     Route: 048
     Dates: start: 20090311
  3. VITAMIN D [Concomitant]
     Indication: OSTEOPOROSIS
     Dosage: 800 IE
     Route: 048
     Dates: start: 20090311

REACTIONS (8)
  - BALANCE DISORDER [None]
  - BLOOD THYROID STIMULATING HORMONE DECREASED [None]
  - CHILLS [None]
  - DECREASED APPETITE [None]
  - DIZZINESS [None]
  - DYSGRAPHIA [None]
  - NAUSEA [None]
  - TREMOR [None]
